FAERS Safety Report 9843983 (Version 1)
Quarter: 2013Q4

REPORT INFORMATION
  Report Type: Spontaneous
  Country: US (occurrence: None)
  Receive Date: 20131223
  Receipt Date: 20131223
  Transmission Date: 20140711
  Serious: No
  Sender: FDA-Public Use
  Company Number: 1000050527

PATIENT
  Age: 67 Year
  Sex: Female

DRUGS (15)
  1. LINZESS (LINACLOTIDE) (145 MICROGRAM, CAPSULES) [Suspect]
     Indication: CONSTIPATION
     Route: 048
     Dates: start: 20131015
  2. CARVEDILOL (CARVEDILOL) (CARVEDILOL) [Concomitant]
  3. OMEPRAZOLE (OMEPRAZOLE) [Concomitant]
  4. SYMBICORT (BUDESONIDE W/FORMOTEROL FUMARATE) (BUDESONIDE W/FORMOTEROL FUMARATE) [Concomitant]
  5. VITAMIN D3 (COLECALCIFEROL) (COLECALCIFEROL) [Concomitant]
  6. ESCITALOPRAM (ESCITALOPRAM OXALATE) (ESCITALOPRAM OXALATE) [Concomitant]
  7. OXYGEN (OXYGEN) [Concomitant]
  8. SPIRONOLACTONE (SPIRONOLACTONE) [Concomitant]
  9. VICODIN (VICODIN) [Concomitant]
  10. DICYCLOMINE (DICYCLOMINE) [Concomitant]
  11. MVI (VITAMINS NOS) (VITAMINS NOS) [Concomitant]
  12. TRAZODONE (TRAZODONE) [Concomitant]
  13. CALCIUM (CALCIUM) [Concomitant]
  14. XANAX (ALPRAZOLAM) (ALPRAZOLAM) [Concomitant]
  15. ASPIRIN (ACETYLSALICYLIC ACID) (ACETYLSALICYLIC ACID) [Concomitant]

REACTIONS (2)
  - Asthenia [None]
  - Somnolence [None]
